FAERS Safety Report 7718777-6 (Version None)
Quarter: 2011Q3

REPORT INFORMATION
  Report Type: 
  Country: None (occurrence: None)
  Receive Date: 20110830
  Receipt Date: 20110823
  Transmission Date: 20111222
  Serious: Yes (Other)
  Sender: FDA-Public Use
  Company Number: ES-PFIZER INC-2011196029

PATIENT
  Age: 62 Year
  Sex: Female

DRUGS (2)
  1. LEVOFLOXACIN [Suspect]
     Indication: PNEUMONIA
     Dosage: 500 MG, 1X/DAY
     Route: 048
     Dates: start: 20110612, end: 20110601
  2. ZYVOX [Suspect]
     Indication: PNEUMONIA
     Dosage: 0.6 G, 2X/DAY
     Route: 048
     Dates: start: 20110610, end: 20110601

REACTIONS (1)
  - TENDONITIS [None]
